FAERS Safety Report 18417453 (Version 1)
Quarter: 2020Q4

REPORT INFORMATION
  Report Type: Spontaneous
  Country: US (occurrence: US)
  Receive Date: 20201023
  Receipt Date: 20201023
  Transmission Date: 20210114
  Serious: No
  Sender: FDA-Public Use
  Company Number: NVSC2020US275208

PATIENT
  Age: 53 Year
  Sex: Male

DRUGS (8)
  1. DARAPRIM [Suspect]
     Active Substance: PYRIMETHAMINE
     Indication: HIV INFECTION
  2. CETIRIZINE [Concomitant]
     Active Substance: CETIRIZINE HYDROCHLORIDE
     Indication: PRODUCT USED FOR UNKNOWN INDICATION
     Dosage: UNK
     Route: 065
  3. DARAPRIM [Suspect]
     Active Substance: PYRIMETHAMINE
     Indication: TOXOPLASMOSIS
     Dosage: 75 MG, QD
     Route: 048
     Dates: start: 20200816
  4. VALTREX [Concomitant]
     Active Substance: VALACYCLOVIR HYDROCHLORIDE
     Indication: PRODUCT USED FOR UNKNOWN INDICATION
     Dosage: 25 MG
     Route: 065
  5. BICTEGRAVIR;EMTRICITABINE;TENOFOVIR [Concomitant]
     Active Substance: BICTEGRAVIR\EMTRICITABINE\TENOFOVIR ALAFENAMIDE
     Indication: PRODUCT USED FOR UNKNOWN INDICATION
     Dosage: UNK
     Route: 065
  6. OMEPRAZOLE. [Concomitant]
     Active Substance: OMEPRAZOLE
     Indication: PRODUCT USED FOR UNKNOWN INDICATION
     Dosage: UNK
     Route: 065
  7. SULFADIAZINE. [Suspect]
     Active Substance: SULFADIAZINE
     Indication: PRODUCT USED FOR UNKNOWN INDICATION
     Dosage: UNK
     Route: 065
     Dates: start: 202008, end: 202009
  8. LEUCOVORIN. [Concomitant]
     Active Substance: LEUCOVORIN
     Indication: PRODUCT USED FOR UNKNOWN INDICATION
     Dosage: UNK
     Route: 065

REACTIONS (25)
  - Polydipsia [Unknown]
  - Abnormal sensation in eye [Unknown]
  - Urine odour abnormal [Unknown]
  - Anxiety [Unknown]
  - Faeces soft [Unknown]
  - Off label use [Unknown]
  - Chromaturia [Unknown]
  - Stress [Unknown]
  - Oropharyngeal discomfort [Unknown]
  - Eye irritation [Unknown]
  - Throat tightness [Unknown]
  - Dyspnoea [Unknown]
  - Hypersensitivity [Unknown]
  - Headache [Unknown]
  - Abdominal discomfort [Unknown]
  - Gingival discomfort [Unknown]
  - Polyuria [Unknown]
  - Tenderness [Unknown]
  - Eructation [Unknown]
  - Dizziness [Unknown]
  - Gastrointestinal sounds abnormal [Unknown]
  - Rash pruritic [Unknown]
  - Tremor [Unknown]
  - Chest discomfort [Unknown]
  - Throat irritation [Unknown]

NARRATIVE: CASE EVENT DATE: 2020
